FAERS Safety Report 8273484-9 (Version None)
Quarter: 2012Q2

REPORT INFORMATION
  Report Type: 
  Country: None (occurrence: None)
  Receive Date: 20120409
  Receipt Date: 20120409
  Transmission Date: 20120825
  Serious: Yes (Hospitalization)
  Sender: FDA-Public Use
  Company Number: None

PATIENT
  Age: 63 Year
  Sex: Male
  Weight: 122.1 kg

DRUGS (1)
  1. PROPOFOL [Suspect]
     Indication: SURGERY
     Dosage: 160 MG OTHER IV
     Route: 042
     Dates: start: 20111227, end: 20111227

REACTIONS (4)
  - AGITATION [None]
  - POST PROCEDURAL COMPLICATION [None]
  - SURGICAL PROCEDURE REPEATED [None]
  - ANAESTHETIC COMPLICATION NEUROLOGICAL [None]
